FAERS Safety Report 4999028-2 (Version None)
Quarter: 2006Q2

REPORT INFORMATION
  Report Type: 
  Country: None (occurrence: None)
  Receive Date: 20060509
  Receipt Date: 20060502
  Transmission Date: 20061013
  Serious: Yes (Other)
  Sender: FDA-Public Use
  Company Number: 007360

PATIENT
  Age: 20 Year
  Sex: Female
  Weight: 66.7 kg

DRUGS (7)
  1. NORETHINDRONE + ETHINYL ESTRADIOL 28 DAY (NORETHINDRONE, ETHINYLESTRAD [Suspect]
     Indication: MENSTRUATION IRREGULAR
     Dosage: 1 TABLET, QD, ORAL; SEE IMAGE
     Route: 048
     Dates: start: 20051218, end: 20060201
  2. NORETHINDRONE + ETHINYL ESTRADIOL 28 DAY (NORETHINDRONE, ETHINYLESTRAD [Suspect]
     Indication: MENSTRUATION IRREGULAR
     Dosage: 1 TABLET, QD, ORAL; SEE IMAGE
     Route: 048
     Dates: start: 20050501
  3. DOXYCYCLINE [Concomitant]
  4. TAZORAC [Concomitant]
  5. PLEXON (CAFFEINE, PROPYPHENAZONE, BUCETIN, APROBARBITAL) [Concomitant]
  6. ZINC (ZINC) [Concomitant]
  7. FOLIC ACID [Concomitant]

REACTIONS (4)
  - DEEP VEIN THROMBOSIS [None]
  - INJURY [None]
  - LIGAMENT INJURY [None]
  - TIBIA FRACTURE [None]
